FAERS Safety Report 20650941 (Version 1)
Quarter: 2022Q1

REPORT INFORMATION
  Report Type: Report from Study
  Country: US (occurrence: US)
  Receive Date: 20220329
  Receipt Date: 20220329
  Transmission Date: 20220424
  Serious: Yes (Death, Life-Threatening, Hospitalization)
  Sender: FDA-Public Use
  Company Number: US-ABBVIE-22P-163-4327231-00

PATIENT
  Age: 12 Year
  Sex: Male
  Weight: 74.4 kg

DRUGS (3)
  1. NAVITOCLAX [Suspect]
     Active Substance: NAVITOCLAX
     Indication: T-cell type acute leukaemia
     Route: 048
     Dates: start: 20220301, end: 20220306
  2. NAVITOCLAX [Suspect]
     Active Substance: NAVITOCLAX
     Route: 048
     Dates: start: 20220308, end: 20220319
  3. VENETOCLAX [Suspect]
     Active Substance: VENETOCLAX
     Indication: T-cell type acute leukaemia
     Route: 048
     Dates: start: 20220301, end: 20220319

REACTIONS (1)
  - Fungal sepsis [Fatal]

NARRATIVE: CASE EVENT DATE: 20220321
